FAERS Safety Report 21960493 (Version 1)
Quarter: 2023Q1

REPORT INFORMATION
  Report Type: Spontaneous
  Country: IN (occurrence: IN)
  Receive Date: 20230207
  Receipt Date: 20230207
  Transmission Date: 20230418
  Serious: Yes (Other)
  Sender: FDA-Public Use
  Company Number: IN-SUN PHARMACEUTICAL INDUSTRIES LTD-2023R1-376789

PATIENT
  Sex: Male
  Weight: 3.52 kg

DRUGS (8)
  1. INSULIN NOS [Suspect]
     Active Substance: INSULIN NOS
     Indication: Gestational diabetes
     Dosage: UNK
     Route: 064
  2. PROGESTERONE [Suspect]
     Active Substance: PROGESTERONE
     Dosage: UNK (200 MG)
     Route: 064
  3. PROGESTERONE [Suspect]
     Active Substance: PROGESTERONE
     Indication: Cervical incompetence
  4. PROGESTERONE [Suspect]
     Active Substance: PROGESTERONE
  5. PROGESTERONE [Suspect]
     Active Substance: PROGESTERONE
     Indication: Cervical incompetence
     Dosage: 400 MILLIGRAM, DAILY
     Route: 064
  6. PROGESTERONE [Suspect]
     Active Substance: PROGESTERONE
     Dosage: 400 MILLIGRAM, BID
     Route: 064
  7. ASPIRIN [Suspect]
     Active Substance: ASPIRIN
     Indication: Cardiovascular disorder
     Dosage: UNK (75 MG)
     Route: 064
  8. HYDROXYPROGESTERONE CAPROATE [Suspect]
     Active Substance: HYDROXYPROGESTERONE CAPROATE
     Indication: Cervical incompetence
     Dosage: 500 MILLIGRAM, WEEKLY
     Route: 064

REACTIONS (2)
  - Foetal exposure during pregnancy [Unknown]
  - Premature baby [Unknown]
